FAERS Safety Report 5387757-0 (Version None)
Quarter: 2007Q3

REPORT INFORMATION
  Report Type: 
  Country: None (occurrence: None)
  Receive Date: 20070716
  Receipt Date: 20070706
  Transmission Date: 20080115
  Serious: Yes (Death, Hospitalization, Congenital Anomaly)
  Sender: FDA-Public Use
  Company Number: B0479118B

PATIENT

DRUGS (1)
  1. PAROXETINE HCL [Suspect]
     Indication: DEPRESSION
     Dosage: 20MG PER DAY
     Dates: start: 20061226, end: 20070215

REACTIONS (2)
  - DRUG EXPOSURE DURING PREGNANCY [None]
  - SPINA BIFIDA [None]
